FAERS Safety Report 5764345-5 (Version None)
Quarter: 2008Q2

REPORT INFORMATION
  Report Type: 
  Country: None (occurrence: None)
  Receive Date: 20080610
  Receipt Date: 20080603
  Transmission Date: 20081010
  Serious: Yes (Death, Other)
  Sender: FDA-Public Use
  Company Number: MZ-BOEHRINGER INGELHEIM GMBH, GERMANY-2008-DE-03217GD

PATIENT

DRUGS (3)
  1. NEVIRAPINE [Suspect]
     Indication: HIV INFECTION
     Route: 048
  2. LAMIVUDINE [Suspect]
     Indication: HIV INFECTION
     Route: 048
  3. NUCLEOSIDE ANALOG REVERSE TRANSCRIPTASE INHIBITOR [Suspect]
     Indication: HIV INFECTION
     Route: 048

REACTIONS (4)
  - ANAEMIA [None]
  - DEATH [None]
  - LIVER DISORDER [None]
  - RASH [None]
